FAERS Safety Report 5344890-7 (Version None)
Quarter: 2007Q2

REPORT INFORMATION
  Report Type: 
  Country: None (occurrence: None)
  Receive Date: 20070416
  Receipt Date: 20070119
  Transmission Date: 20071010
  Serious: No
  Sender: FDA-Public Use
  Company Number: 2007SP000227

PATIENT
  Age: 78 Year
  Sex: Female

DRUGS (11)
  1. LUNESTA [Suspect]
     Indication: INSOMNIA
     Dosage: 2 MG ORAL
     Route: 048
     Dates: start: 20051001, end: 20051201
  2. ALTACE [Concomitant]
  3. COREG [Concomitant]
  4. COZAAR [Concomitant]
  5. LEVOTHROID [Concomitant]
  6. AMLODIPINE BESYLATE [Concomitant]
  7. POTASSIUM CHLORIDE [Concomitant]
  8. WARFARIN SODIUM [Concomitant]
  9. HYDROCHLOROTHIAZIDE [Concomitant]
  10. CALCIUM WITH VITAMIN D [Concomitant]
  11. VITAMIN CAP [Concomitant]

REACTIONS (4)
  - BALANCE DISORDER [None]
  - MALAISE [None]
  - NERVOUSNESS [None]
  - PSYCHOMOTOR HYPERACTIVITY [None]
